FAERS Safety Report 16585544 (Version 7)
Quarter: 2020Q1

REPORT INFORMATION
  Report Type: Spontaneous
  Country: US (occurrence: US)
  Receive Date: 20190717
  Receipt Date: 20200219
  Transmission Date: 20200409
  Serious: No
  Sender: FDA-Public Use
  Company Number: US-ACTELION-A-US2019-193069

PATIENT
  Age: 67 Year
  Sex: Female
  Weight: 72.56 kg

DRUGS (3)
  1. OPSUMIT [Suspect]
     Active Substance: MACITENTAN
     Indication: PULMONARY HYPERTENSION
     Dosage: 10 MG, QD
     Route: 048
  2. REVATIO [Concomitant]
     Active Substance: SILDENAFIL CITRATE
  3. REMODULIN [Concomitant]
     Active Substance: TREPROSTINIL

REACTIONS (11)
  - Flatulence [Unknown]
  - Catheter site pain [Unknown]
  - Pneumonia [Unknown]
  - Catheter site irritation [Unknown]
  - Pyrexia [Unknown]
  - Weight decreased [Unknown]
  - Catheter site swelling [Unknown]
  - Catheter site erythema [Unknown]
  - Diarrhoea [Unknown]
  - Catheter site discharge [Unknown]
  - Skin disorder [Unknown]

NARRATIVE: CASE EVENT DATE: 20190704
